FAERS Safety Report 17965410 (Version 3)
Quarter: 2020Q3

REPORT INFORMATION
  Report Type: Report from Study
  Country: CO (occurrence: CO)
  Receive Date: 20200630
  Receipt Date: 20200829
  Transmission Date: 20201103
  Serious: Yes (Other)
  Sender: FDA-Public Use
  Company Number: NVSC2019CO023406

PATIENT
  Age: 69 Year
  Sex: Female
  Weight: 44.7 kg

DRUGS (21)
  1. KISQALI [Suspect]
     Active Substance: RIBOCICLIB
     Dosage: 600 MG, QD
     Route: 048
     Dates: start: 20191205
  2. KISQALI [Suspect]
     Active Substance: RIBOCICLIB
     Dosage: 400 MG, QD (9TH CYCLE)
     Route: 065
     Dates: start: 20200807
  3. FEMARA [Suspect]
     Active Substance: LETROZOLE
     Dosage: 2.5 MG, QD (FROM 9 MONTHS AGO)
     Route: 048
  4. CALCIUM WITH VITAMIN D3 [Concomitant]
     Active Substance: CALCIUM CARBONATE\CHOLECALCIFEROL
     Indication: PROPHYLAXIS
     Dosage: UNK, QD (ONCE A DAY)
     Route: 048
  5. KISQALI [Suspect]
     Active Substance: RIBOCICLIB
     Dosage: 400 MG, QD
     Route: 048
     Dates: start: 202001
  6. FEMARA [Suspect]
     Active Substance: LETROZOLE
     Dosage: UNK (8TH CYCLE)
     Route: 065
     Dates: start: 20200626
  7. FEMARA [Suspect]
     Active Substance: LETROZOLE
     Dosage: UNK (9TH CYCLE)
     Route: 065
     Dates: start: 20200807
  8. KISQALI [Suspect]
     Active Substance: RIBOCICLIB
     Dosage: 400 MG, QD
     Route: 048
     Dates: start: 20191004
  9. DALTEPARINE SODIQUE [Concomitant]
     Active Substance: DALTEPARIN SODIUM
     Indication: THROMBOSIS
     Dosage: 0.3 MG, QD (EVERY 24 HOURS)
     Route: 065
     Dates: start: 20200824
  10. FEMARA [Suspect]
     Active Substance: LETROZOLE
     Indication: BREAST CANCER
     Dosage: 2.5 MG, QD
     Route: 048
     Dates: start: 20191004
  11. KISQALI [Suspect]
     Active Substance: RIBOCICLIB
     Dosage: 400 MG, QD (FOR 21 DAYS AND RESTS 7 DAYS)
     Route: 048
     Dates: start: 20191107, end: 20191128
  12. KISQALI [Suspect]
     Active Substance: RIBOCICLIB
     Dosage: 400 MG, QD
     Route: 048
  13. PREGABALIN. [Suspect]
     Active Substance: PREGABALIN
     Indication: PAIN
     Dosage: 75 MG, QD
     Route: 048
  14. MORPHINE [Concomitant]
     Active Substance: MORPHINE
     Indication: ARTHRALGIA
     Dosage: 10 DRP, Q6H
     Route: 048
  15. KISQALI [Suspect]
     Active Substance: RIBOCICLIB
     Indication: BREAST CANCER METASTATIC
     Dosage: 600 MG, QD (FOR 21 DAYS AND RESTS 7 DAYS)
     Route: 048
     Dates: start: 20191004
  16. KISQALI [Suspect]
     Active Substance: RIBOCICLIB
     Dosage: 200 MG
     Route: 048
  17. KISQALI [Suspect]
     Active Substance: RIBOCICLIB
     Dosage: 600 MG, QD (FROM 9 MONTHS AGO)
     Route: 048
     Dates: end: 202001
  18. KISQALI [Suspect]
     Active Substance: RIBOCICLIB
     Dosage: UNK (8TH CYCLE)
     Route: 065
     Dates: start: 20200626, end: 20200716
  19. MORPHINE [Concomitant]
     Active Substance: MORPHINE
     Dosage: 8 UNK, Q6H
     Route: 048
  20. ZOLEDRONIC ACID [Suspect]
     Active Substance: ZOLEDRONIC ACID
     Indication: PROPHYLAXIS
     Dosage: UNK UNK, QMO (FROM 11 MONTH AGO)
     Route: 042
  21. ENOXAPARIN [Concomitant]
     Active Substance: ENOXAPARIN
     Indication: THROMBOSIS
     Dosage: UNK
     Route: 065

REACTIONS (8)
  - Abdominal pain upper [Unknown]
  - White blood cell count decreased [Unknown]
  - Diarrhoea [Unknown]
  - Platelet count decreased [Unknown]
  - Decreased immune responsiveness [Unknown]
  - Dizziness [Unknown]
  - Femur fracture [Unknown]
  - Hypersensitivity [Recovered/Resolved]

NARRATIVE: CASE EVENT DATE: 20191030
